FAERS Safety Report 12724060 (Version 1)
Quarter: 2016Q3

REPORT INFORMATION
  Report Type: Spontaneous
  Country: US (occurrence: US)
  Receive Date: 20160902
  Receipt Date: 20160902
  Transmission Date: 20161109
  Serious: Yes (Hospitalization)
  Sender: FDA-Public Use
  Company Number: None

PATIENT
  Age: 81 Year
  Sex: Male
  Weight: 89.6 kg

DRUGS (1)
  1. WARFARIN [Suspect]
     Active Substance: WARFARIN
     Indication: ATRIAL FIBRILLATION
     Route: 048
     Dates: start: 20160302, end: 20160625

REACTIONS (5)
  - Haematochezia [None]
  - Orthostatic hypotension [None]
  - Anaemia [None]
  - Dizziness [None]
  - Gastric haemorrhage [None]

NARRATIVE: CASE EVENT DATE: 20160625
